FAERS Safety Report 25708677 (Version 1)
Quarter: 2025Q3

REPORT INFORMATION
  Report Type: Other
  Country: CH (occurrence: CH)
  Receive Date: 20250821
  Receipt Date: 20250821
  Transmission Date: 20251020
  Serious: Yes (Hospitalization, Other)
  Sender: DEXCEL LTD.
  Company Number: CH-DEXPHARM-2025-4250

PATIENT
  Age: 82 Year
  Sex: Male

DRUGS (7)
  1. ESOMEPRAZOLE [Interacting]
     Active Substance: ESOMEPRAZOLE
  2. CANDESARTAN [Concomitant]
     Active Substance: CANDESARTAN
  3. METOPROLOL [Concomitant]
     Active Substance: METOPROLOL
  4. ATORVASTATIN [Concomitant]
     Active Substance: ATORVASTATIN
  5. INSULIN DEGLUDEC [Concomitant]
     Active Substance: INSULIN DEGLUDEC
  6. EMPAGLIFLOZIN [Concomitant]
     Active Substance: EMPAGLIFLOZIN
  7. LEVOTHYROXINE [Concomitant]
     Active Substance: LEVOTHYROXINE

REACTIONS (6)
  - Atrial fibrillation [Recovered/Resolved]
  - Haemodynamic instability [Recovered/Resolved]
  - Hypokalaemia [Recovered/Resolved]
  - Hypocalcaemia [Recovered/Resolved]
  - Hypomagnesaemia [Recovered/Resolved]
  - Alcohol interaction [Recovered/Resolved]
